FAERS Safety Report 8926293 (Version 2)
Quarter: 2012Q4

REPORT INFORMATION
  Report Type: 
  Country: PH (occurrence: PH)
  Receive Date: 20121126
  Receipt Date: 20121212
  Transmission Date: 20130627
  Serious: Yes (Hospitalization)
  Sender: FDA-Public Use
  Company Number: PHHY2012PH106017

PATIENT
  Sex: Male

DRUGS (1)
  1. INDACATEROL [Suspect]
     Dosage: 150 ug, QD
     Dates: start: 20121114

REACTIONS (1)
  - Condition aggravated [Recovering/Resolving]
